FAERS Safety Report 15793396 (Version 1)
Quarter: 2019Q1

REPORT INFORMATION
  Report Type: Spontaneous
  Country: US (occurrence: US)
  Receive Date: 20190104
  Receipt Date: 20190104
  Transmission Date: 20190417
  Serious: Yes (Other)
  Sender: FDA-Public Use
  Company Number: None

PATIENT
  Age: 39 Year
  Sex: Female
  Weight: 51.75 kg

DRUGS (22)
  1. BENZONATATE. [Concomitant]
     Active Substance: BENZONATATE
  2. CHERATUSSIN [Concomitant]
     Active Substance: AMMONIUM CHLORIDE\DEXTROMETHORPHAN\SODIUM CITRATE
  3. OMEPRAZOLE. [Concomitant]
     Active Substance: OMEPRAZOLE
  4. PREDNISONE. [Concomitant]
     Active Substance: PREDNISONE
  5. FUROSEMIDE. [Concomitant]
     Active Substance: FUROSEMIDE
  6. GABAPENTIN. [Concomitant]
     Active Substance: GABAPENTIN
  7. MUPIROCIN. [Concomitant]
     Active Substance: MUPIROCIN
  8. BISACODYL. [Concomitant]
     Active Substance: BISACODYL
  9. DOCUSATE [Concomitant]
     Active Substance: DOCUSATE
  10. SENNA [Concomitant]
     Active Substance: SENNA LEAF\SENNOSIDES\SENNOSIDES A AND B
  11. VITAMIN D [Concomitant]
     Active Substance: CHOLECALCIFEROL
  12. ONDANSETRON [Concomitant]
     Active Substance: ONDANSETRON
  13. CALCIUM [Concomitant]
     Active Substance: CALCIUM
  14. TRIAMCINOLONE [Concomitant]
     Active Substance: TRIAMCINOLONE
  15. PERCOCET [Concomitant]
     Active Substance: ACETAMINOPHEN\OXYCODONE HYDROCHLORIDE
  16. PEG 3350 [Concomitant]
     Active Substance: POLYETHYLENE GLYCOL 3350
  17. PROAIR HFA [Concomitant]
     Active Substance: ALBUTEROL SULFATE
  18. KISQALI [Suspect]
     Active Substance: RIBOCICLIB
     Indication: BREAST CANCER
     Route: 048
     Dates: start: 20181113
  19. AMOXICILLIN. [Concomitant]
     Active Substance: AMOXICILLIN
  20. EXEMESTANE. [Concomitant]
     Active Substance: EXEMESTANE
  21. LOPERAMIDE [Concomitant]
     Active Substance: LOPERAMIDE
  22. SPIRONOLACTONE. [Concomitant]
     Active Substance: SPIRONOLACTONE

REACTIONS (1)
  - Disease progression [None]
